FAERS Safety Report 23356964 (Version 1)
Quarter: 2023Q4

REPORT INFORMATION
  Report Type: Spontaneous
  Country: US (occurrence: None)
  Receive Date: 20231229
  Receipt Date: 20231229
  Transmission Date: 20240109
  Serious: Yes (Hospitalization)
  Sender: FDA-Public Use
  Company Number: None

PATIENT
  Sex: Female

DRUGS (1)
  1. CAPECITABINE [Suspect]
     Active Substance: CAPECITABINE
     Indication: Sarcoidosis
     Dosage: OTHER FREQUENCY : 3T 2D D1-14 OF 21 ;?
     Route: 048
     Dates: start: 202310

REACTIONS (4)
  - Cellulitis [None]
  - Gout [None]
  - Gait inability [None]
  - Infection [None]
